FAERS Safety Report 13810391 (Version 3)
Quarter: 2020Q1

REPORT INFORMATION
  Report Type: Spontaneous
  Country: US (occurrence: US)
  Receive Date: 20170728
  Receipt Date: 20200319
  Transmission Date: 20200409
  Serious: No
  Sender: FDA-Public Use
  Company Number: US-PFIZER INC-2017328114

PATIENT
  Age: 79 Year
  Sex: Female

DRUGS (1)
  1. SERTRALINE HCL [Suspect]
     Active Substance: SERTRALINE HYDROCHLORIDE
     Indication: TYPE IIA HYPERLIPIDAEMIA
     Dosage: 100 MG, 1X/DAY

REACTIONS (7)
  - Abdominal discomfort [Unknown]
  - Dyspepsia [Unknown]
  - Dry mouth [Unknown]
  - Product use in unapproved indication [Unknown]
  - Malaise [Unknown]
  - Off label use [Unknown]
  - Nausea [Unknown]
